FAERS Safety Report 8169965-9 (Version None)
Quarter: 2012Q1

REPORT INFORMATION
  Report Type: 
  Country: None (occurrence: None)
  Receive Date: 20120228
  Receipt Date: 20120228
  Transmission Date: 20120608
  Serious: Yes (Hospitalization)
  Sender: FDA-Public Use
  Company Number: None

PATIENT
  Sex: Male
  Weight: 61.2 kg

DRUGS (1)
  1. ENOXAPARIN [Suspect]
     Dosage: 80 MG
     Route: 058

REACTIONS (5)
  - HAEMORRHAGE INTRACRANIAL [None]
  - BRAIN OEDEMA [None]
  - HEADACHE [None]
  - AGITATION [None]
  - DISORIENTATION [None]
